FAERS Safety Report 17336881 (Version 2)
Quarter: 2020Q2

REPORT INFORMATION
  Report Type: Spontaneous
  Country: FR (occurrence: FR)
  Receive Date: 20200129
  Receipt Date: 20200407
  Transmission Date: 20200713
  Serious: Yes (Other)
  Sender: FDA-Public Use
  Company Number: NVSC2020FR016487

PATIENT
  Sex: Male
  Weight: 173 kg

DRUGS (4)
  1. TEGRETOL [Suspect]
     Active Substance: CARBAMAZEPINE
     Dosage: 200 MG EVERY 5.5 HR
     Route: 048
  2. TEGRETOL [Suspect]
     Active Substance: CARBAMAZEPINE
     Indication: PRODUCT USED FOR UNKNOWN INDICATION
     Dosage: 200 MG (ONCE) AROUND 24-31 DEC 2019
     Route: 065
     Dates: start: 201912
  3. TEGRETOL [Suspect]
     Active Substance: CARBAMAZEPINE
     Dosage: 400 MG
     Route: 065
  4. TEGRETOL [Suspect]
     Active Substance: CARBAMAZEPINE
     Indication: TRIGEMINAL NEURALGIA
     Dosage: 200 MG, Q5H
     Route: 048
     Dates: start: 201604

REACTIONS (5)
  - Hyponatraemia [Not Recovered/Not Resolved]
  - Trigeminal neuralgia [Unknown]
  - Tremor [Not Recovered/Not Resolved]
  - Burn oral cavity [Unknown]
  - Fall [Unknown]

NARRATIVE: CASE EVENT DATE: 20190901
